FAERS Safety Report 8235592-8 (Version None)
Quarter: 2012Q1

REPORT INFORMATION
  Report Type: 
  Country: None (occurrence: None)
  Receive Date: 20120326
  Receipt Date: 20120314
  Transmission Date: 20120608
  Serious: Yes (Other)
  Sender: FDA-Public Use
  Company Number: US-ELI_LILLY_AND_COMPANY-US201203005392

PATIENT
  Sex: Female

DRUGS (1)
  1. CYMBALTA [Suspect]
     Dosage: UNK, UNKNOWN

REACTIONS (3)
  - SEROTONIN SYNDROME [None]
  - INFLUENZA LIKE ILLNESS [None]
  - DRUG WITHDRAWAL SYNDROME [None]
